FAERS Safety Report 6303986-3 (Version None)
Quarter: 2009Q3

REPORT INFORMATION
  Report Type: 
  Country: None (occurrence: None)
  Receive Date: 20090810
  Receipt Date: 20090729
  Transmission Date: 20100115
  Serious: Yes (Other)
  Sender: FDA-Public Use
  Company Number: US-PFIZER INC-2008070938

PATIENT
  Sex: Female
  Weight: 68.027 kg

DRUGS (6)
  1. SILDENAFIL CITRATE [Suspect]
     Indication: PULMONARY HYPERTENSION
     Dosage: 25 MG, 1X/DAY
  2. SILDENAFIL CITRATE [Suspect]
     Dosage: 20 MG, 3X/DAY
     Dates: start: 20081001, end: 20090701
  3. BENICAR [Concomitant]
     Indication: HYPERTENSION
     Dosage: UNK
  4. TOPROL-XL [Concomitant]
  5. WARFARIN [Concomitant]
     Dosage: UNK
  6. SYNTHROID [Concomitant]
     Dosage: UNK

REACTIONS (11)
  - BLOOD PRESSURE DECREASED [None]
  - BLOOD PRESSURE INCREASED [None]
  - BREAST SWELLING [None]
  - CEREBROVASCULAR ACCIDENT [None]
  - CONSTIPATION [None]
  - DRUG INEFFECTIVE [None]
  - FATIGUE [None]
  - OEDEMA [None]
  - VISION BLURRED [None]
  - VISUAL ACUITY REDUCED [None]
  - VISUAL IMPAIRMENT [None]
